FAERS Safety Report 11785591 (Version 1)
Quarter: 2015Q4

REPORT INFORMATION
  Report Type: Spontaneous
  Country: VE (occurrence: VE)
  Receive Date: 20151130
  Receipt Date: 20151130
  Transmission Date: 20160305
  Serious: Yes (Other)
  Sender: FDA-Public Use
  Company Number: PHHY2015VE155999

PATIENT
  Age: 29 Year
  Sex: Female

DRUGS (2)
  1. ESOMEPRAZOLE [Concomitant]
     Active Substance: ESOMEPRAZOLE
     Indication: PROPHYLAXIS
     Dosage: 40 MG, QD
     Route: 065
  2. TRILEPTAL [Suspect]
     Active Substance: OXCARBAZEPINE
     Indication: SEIZURE
     Dosage: 1200 MG, QD
     Route: 048
     Dates: start: 201507

REACTIONS (5)
  - Thrombosis [Recovered/Resolved]
  - Psychomotor hyperactivity [Unknown]
  - Noninfective encephalitis [Recovering/Resolving]
  - Epilepsy [Unknown]
  - Head injury [Unknown]

NARRATIVE: CASE EVENT DATE: 20150916
